FAERS Safety Report 9338803 (Version 2)
Quarter: 2018Q2

REPORT INFORMATION
  Report Type: Other
  Country: DE (occurrence: DE)
  Receive Date: 20130610
  Receipt Date: 20180416
  Transmission Date: 20180711
  Serious: Yes (Hospitalization)
  Sender: FDA-Public Use
  Company Number: DE-MPIJNJ-2013-04259

PATIENT
  Sex: Male
  Weight: 55 kg

DRUGS (3)
  1. VELCADE [Suspect]
     Active Substance: BORTEZOMIB
     Indication: PLASMACYTOMA
     Dosage: 1.3 MG, UNK
     Route: 042
     Dates: start: 20120813, end: 20121130
  2. ALKERAN [Concomitant]
     Active Substance: MELPHALAN
     Indication: PLASMACYTOMA
     Dosage: 16 MG, UNK
     Route: 048
     Dates: start: 20120813, end: 20121127
  3. PREDNISOLONE. [Concomitant]
     Active Substance: PREDNISOLONE
     Indication: PLASMACYTOMA
     Dosage: 100 MG, UNK
     Route: 048
     Dates: start: 20120813, end: 20121130

REACTIONS (2)
  - Off label use [Unknown]
  - Epilepsy [Recovered/Resolved]

NARRATIVE: CASE EVENT DATE: 20120813
